FAERS Safety Report 9391506 (Version 1)
Quarter: 2013Q3

REPORT INFORMATION
  Report Type: Spontaneous
  Country: IN (occurrence: IN)
  Receive Date: 20130709
  Receipt Date: 20130709
  Transmission Date: 20140515
  Serious: Yes (Death, Hospitalization)
  Sender: FDA-Public Use
  Company Number: PHHY2013IN072770

PATIENT
  Age: 51 Year
  Sex: Male
  Weight: 51 kg

DRUGS (5)
  1. SIMULECT [Suspect]
     Indication: RENAL TRANSPLANT
     Dosage: 20 MG STAT
     Route: 042
     Dates: start: 20130705
  2. MYCOPHENOLATE SODIUM [Concomitant]
     Indication: IMMUNOSUPPRESSION
     Dosage: 720 MG, BID
     Route: 048
     Dates: start: 20130703
  3. TACROLIMUS [Concomitant]
     Indication: IMMUNOSUPPRESSION
     Dosage: 3 MG, BID
     Route: 048
     Dates: start: 20130703
  4. WYSOLONE [Concomitant]
     Indication: IMMUNOSUPPRESSION
     Dosage: 20 MG, QD
     Route: 048
     Dates: start: 20130703
  5. CALCIGARD [Concomitant]
     Indication: HYPERTENSION
     Dosage: 10 MG, QD
     Route: 048

REACTIONS (1)
  - Hypotension [Fatal]
